FAERS Safety Report 7255644-9 (Version None)
Quarter: 2011Q1

REPORT INFORMATION
  Report Type: 
  Country: None (occurrence: None)
  Receive Date: 20110129
  Receipt Date: 20100827
  Transmission Date: 20110831
  Serious: No
  Sender: FDA-Public Use
  Company Number: US-ABBOTT-10P-163-0666687-00

PATIENT
  Age: 50 Year
  Sex: Female

DRUGS (3)
  1. CELEBREX [Concomitant]
     Indication: ARTHRALGIA
  2. CRESTOR [Concomitant]
     Indication: BLOOD CHOLESTEROL INCREASED
  3. HUMIRA [Suspect]
     Indication: PSORIATIC ARTHROPATHY
     Dates: start: 20100501

REACTIONS (2)
  - INJECTION SITE HAEMATOMA [None]
  - APHTHOUS STOMATITIS [None]
